FAERS Safety Report 21831838 (Version 1)
Quarter: 2023Q1

REPORT INFORMATION
  Report Type: Spontaneous
  Country: IT (occurrence: IT)
  Receive Date: 20230106
  Receipt Date: 20230106
  Transmission Date: 20230418
  Serious: Yes (Other)
  Sender: FDA-Public Use
  Company Number: IT-002147023-NVSC2023IT001268

PATIENT
  Age: 42 Year
  Sex: Female

DRUGS (4)
  1. ASPIRIN [Suspect]
     Active Substance: ASPIRIN
     Indication: Antiplatelet therapy
     Dosage: CUMULATIVE DOSE: 100.1 MG (TEN INCREASING DOSES AT 30-MINUTE INTERVALS)
     Route: 048
  2. ASPIRIN [Suspect]
     Active Substance: ASPIRIN
     Dosage: FULL DOSE: 100 MG, QD (ADMINISTERED SUCCESSFULLY)
     Route: 048
  3. CLOPIDOGREL [Suspect]
     Active Substance: CLOPIDOGREL BISULFATE
     Indication: Antiplatelet therapy
     Dosage: UNK (STOPPING FROM 5 DAYS BEFORE TO 1 DAY AFTER THE DELIVERY)
     Route: 065
  4. INDOBUFEN [Suspect]
     Active Substance: INDOBUFEN
     Indication: Antiplatelet therapy
     Dosage: UNK
     Route: 065

REACTIONS (3)
  - Premature delivery [Unknown]
  - Normal newborn [Unknown]
  - Maternal exposure during pregnancy [Unknown]
